FAERS Safety Report 8116133-2 (Version None)
Quarter: 2012Q1

REPORT INFORMATION
  Report Type: 
  Country: None (occurrence: None)
  Receive Date: 20120206
  Receipt Date: 20120130
  Transmission Date: 20120608
  Serious: Yes (Other)
  Sender: FDA-Public Use
  Company Number: SN-B.I. PHARMACEUTICALS,INC./RIDGEFIELD-2012-EU-00637GD

PATIENT
  Age: 26 Year
  Sex: Female

DRUGS (3)
  1. NEVIRAPINE [Suspect]
     Indication: HIV INFECTION
     Dates: start: 20061130
  2. ZERIT [Suspect]
     Indication: HIV INFECTION
     Dates: start: 20061130
  3. LAMIVUDINE [Suspect]
     Indication: HIV INFECTION
     Dates: start: 20061130

REACTIONS (2)
  - IMMUNE RECONSTITUTION SYNDROME [None]
  - BORDERLINE LEPROSY [None]
